FAERS Safety Report 18062152 (Version 1)
Quarter: 2020Q3

REPORT INFORMATION
  Report Type: Report from Study
  Country: None (occurrence: US)
  Receive Date: 20200724
  Receipt Date: 20200724
  Transmission Date: 20201103
  Serious: Yes (Other)
  Sender: FDA-Public Use
  Company Number: US-ABBVIE-20K-163-3488090-00

PATIENT
  Age: 73 Year
  Sex: Female
  Weight: 78.54 kg

DRUGS (2)
  1. HUMIRA [Suspect]
     Active Substance: ADALIMUMAB
     Indication: ANKYLOSING SPONDYLITIS
     Route: 058
  2. HUMIRA [Suspect]
     Active Substance: ADALIMUMAB
     Route: 058
     Dates: start: 2020

REACTIONS (3)
  - Surgery [Unknown]
  - Injection site pain [Recovered/Resolved]
  - Neoplasm of appendix [Not Recovered/Not Resolved]

NARRATIVE: CASE EVENT DATE: 20200501
